FAERS Safety Report 8564265-7 (Version None)
Quarter: 2012Q3

REPORT INFORMATION
  Report Type: 
  Country: None (occurrence: None)
  Receive Date: 20120803
  Receipt Date: 20120725
  Transmission Date: 20120928
  Serious: Yes (Hospitalization)
  Sender: FDA-Public Use
  Company Number: US-BAYER-2011-013028

PATIENT
  Age: 44 Year
  Sex: Female
  Weight: 90.703 kg

DRUGS (17)
  1. METFORMIN HYDROCHLORIDE [Concomitant]
     Dosage: 500 MG, UNK
     Route: 048
  2. DIAZEPAM [Concomitant]
     Indication: ANXIETY
     Dosage: 5 MG,ONE TABLET ONE HOUR BEFORE SURGERY
     Route: 048
     Dates: start: 20090208
  3. DIAZEPAM [Concomitant]
     Dosage: 5 MG,  EVERY 12 HOURS
  4. DROSPIRENONE AND ETHINYL ESTRADIOL [Suspect]
     Indication: PREMENSTRUAL SYNDROME
  5. HYDROCHLOROTHIAZIDE [Concomitant]
     Indication: FLUID RETENTION
     Dosage: 12.5 MG, UNK
     Route: 048
     Dates: start: 20070101, end: 20090101
  6. YASMIN [Suspect]
     Indication: ACNE
     Dosage: UNK
     Dates: start: 20080401, end: 20080701
  7. DROSPIRENONE AND ETHINYL ESTRADIOL [Suspect]
     Indication: ACNE
     Dosage: UNK
     Dates: start: 20080421, end: 20090307
  8. MEPERIDINE HCL [Concomitant]
     Indication: PAIN
     Dosage: 50 MG, TAKE ONE EVERY 4 HOURS
     Route: 048
  9. KEFLEX [Concomitant]
     Dosage: 750 MG, BID AFTER SURGERY
     Route: 048
  10. DEMEROL [Concomitant]
     Route: 048
  11. AMOXISTAD [AMOXICILLIN TRIHYDRATE,CLAVULANATE POTASSIUM] [Concomitant]
     Dosage: 875 MG, BID
     Route: 048
  12. EMEND [Concomitant]
     Dosage: 40 MG, TAKE ONCE CAPSULE, ONE HOUR PRIOR TO SURGERY
     Route: 048
  13. YASMIN [Suspect]
     Indication: PREMENSTRUAL SYNDROME
  14. LEXAPRO [Concomitant]
     Indication: ANXIETY
     Dosage: 20 MG, UNK
     Route: 048
     Dates: start: 20070101, end: 20090101
  15. ROBAXIN [Concomitant]
     Route: 048
  16. VALIUM [Concomitant]
     Route: 048
  17. TOPAMAX [Concomitant]
     Dosage: 100 MG, HS
     Route: 048

REACTIONS (5)
  - ANXIETY [None]
  - DEEP VEIN THROMBOSIS [None]
  - PAIN [None]
  - PULMONARY EMBOLISM [None]
  - EMOTIONAL DISTRESS [None]
